FAERS Safety Report 8966492 (Version 2)
Quarter: 2013Q1

REPORT INFORMATION
  Report Type: Report from Study
  Country: AT (occurrence: AT)
  Receive Date: 20121214
  Receipt Date: 20130213
  Transmission Date: 20140127
  Serious: Yes (Hospitalization, Other)
  Sender: FDA-Public Use
  Company Number: AT-ABBOTT-12P-009-1017876-00

PATIENT
  Age: 80 Year
  Sex: Female
  Weight: 53 kg

DRUGS (25)
  1. ZEMPLAR [Suspect]
     Indication: HYPERPARATHYROIDISM SECONDARY
     Dosage: 15 MICROGRAM/ML
     Route: 042
     Dates: start: 20120109
  2. ZEMPLAR [Suspect]
     Route: 042
     Dates: start: 20120125, end: 20120207
  3. ZEMPLAR [Suspect]
     Route: 042
     Dates: start: 20120208, end: 20120219
  4. ZEMPLAR [Suspect]
     Route: 042
     Dates: start: 20120220, end: 20120314
  5. ZEMPLAR [Suspect]
     Route: 042
     Dates: start: 20120315, end: 20120716
  6. ZEMPLAR [Suspect]
     Route: 042
     Dates: start: 20120717, end: 20120812
  7. ZEMPLAR [Suspect]
     Route: 042
     Dates: start: 20120813, end: 20120916
  8. ZEMPLAR [Suspect]
     Route: 042
     Dates: start: 20120917
  9. ARICEPT [Concomitant]
     Indication: PRODUCT USED FOR UNKNOWN INDICATION
     Dosage: AT BEDTIME
     Route: 048
     Dates: start: 20110818
  10. CORBITHYREX MITE [Concomitant]
     Indication: PRODUCT USED FOR UNKNOWN INDICATION
     Dosage: 1/2 -0-0
     Route: 048
     Dates: start: 20110818
  11. COSAAR [Concomitant]
     Indication: PRODUCT USED FOR UNKNOWN INDICATION
     Dosage: 1-0-1
     Route: 048
     Dates: start: 20110818
  12. DILATREND [Concomitant]
     Indication: PRODUCT USED FOR UNKNOWN INDICATION
     Dosage: 1-0-1/2
     Route: 048
     Dates: start: 20110818
  13. FRAGMIN [Concomitant]
     Indication: PRODUCT USED FOR UNKNOWN INDICATION
     Dosage: 2500 I.E ON DAYS WITHOUT HAEMODIALYSIS 1-0-0
     Route: 058
     Dates: start: 20110818
  14. MAGNONORM [Concomitant]
     Indication: PRODUCT USED FOR UNKNOWN INDICATION
     Dosage: 1-0-0
     Dates: start: 20110822
  15. PANTOLOC [Concomitant]
     Indication: PRODUCT USED FOR UNKNOWN INDICATION
     Dosage: 1-0-0
     Route: 048
     Dates: start: 20110818
  16. RENVELA [Concomitant]
     Indication: PRODUCT USED FOR UNKNOWN INDICATION
     Dosage: 2-2-2
     Route: 048
     Dates: start: 20110818, end: 20120124
  17. RENVELA [Concomitant]
     Dosage: 3-3-3
     Route: 048
     Dates: start: 20120126
  18. UROSIN [Concomitant]
     Indication: PRODUCT USED FOR UNKNOWN INDICATION
     Dosage: 1-0-0 ON DAYS WITHOUT HEMODIALYSIS
     Route: 048
     Dates: start: 20110818
  19. NORVASC [Concomitant]
     Indication: PRODUCT USED FOR UNKNOWN INDICATION
     Dosage: 1-0-1
     Route: 048
     Dates: start: 20110818
  20. L-CARNITIN AMPOULE [Concomitant]
     Indication: PRODUCT USED FOR UNKNOWN INDICATION
     Dosage: ON DAY WITHOUT HAEMODIALYSIS
     Route: 042
     Dates: start: 20110308
  21. FERRLECIT [Concomitant]
     Indication: PRODUCT USED FOR UNKNOWN INDICATION
     Route: 042
     Dates: start: 20111110, end: 20120214
  22. FERRLECIT [Concomitant]
     Route: 042
     Dates: start: 20120508, end: 20121012
  23. FERRLECIT [Concomitant]
     Route: 042
     Dates: start: 20121013
  24. NEORECORMON [Concomitant]
     Indication: PRODUCT USED FOR UNKNOWN INDICATION
     Dosage: 2000 I.E ON DAYS WITH HEMODIALYSIS
     Route: 048
     Dates: start: 20110308
  25. OLEOVIT VITAMIN D3 [Concomitant]
     Indication: PRODUCT USED FOR UNKNOWN INDICATION
     Dosage: 15 GTT
     Route: 048
     Dates: start: 20120813

REACTIONS (9)
  - General physical health deterioration [Not Recovered/Not Resolved]
  - Syncope [Not Recovered/Not Resolved]
  - Cerebral haemorrhage [Not Recovered/Not Resolved]
  - Blood parathyroid hormone decreased [Recovered/Resolved]
  - Bone pain [Not Recovered/Not Resolved]
  - Pruritus [Not Recovered/Not Resolved]
  - Fatigue [Not Recovered/Not Resolved]
  - Aortic stenosis [Unknown]
  - Mitral valve incompetence [Unknown]
